FAERS Safety Report 14327054 (Version 3)
Quarter: 2020Q2

REPORT INFORMATION
  Report Type: Spontaneous
  Country: US (occurrence: US)
  Receive Date: 20171227
  Receipt Date: 20200519
  Transmission Date: 20200713
  Serious: Yes (Hospitalization, Other)
  Sender: FDA-Public Use
  Company Number: US-ASTRAZENECA-2017SF30498

PATIENT
  Age: 10162 Day
  Sex: Female
  Weight: 88.5 kg

DRUGS (39)
  1. PRILOSEC [Suspect]
     Active Substance: OMEPRAZOLE MAGNESIUM
     Indication: GASTROOESOPHAGEAL REFLUX DISEASE
     Route: 048
  2. PANTOPRAZOLE [Suspect]
     Active Substance: PANTOPRAZOLE
     Indication: GASTROOESOPHAGEAL REFLUX DISEASE
     Dosage: GENERIC
     Route: 065
  3. RADIATION [Concomitant]
     Active Substance: RADIATION THERAPY
     Indication: NEOPLASM MALIGNANT
  4. AMITRIPTYLINE [Concomitant]
     Active Substance: AMITRIPTYLINE
     Indication: DEPRESSION
     Dosage: TAKE TWO TABLETS (20MG) AT BEDTIME.
  5. SULFAMETHOXAZOLE-TR [Concomitant]
  6. TEMODAR [Concomitant]
     Active Substance: TEMOZOLOMIDE
     Indication: BRAIN CANCER METASTATIC
  7. BACTRIM [Concomitant]
     Active Substance: SULFAMETHOXAZOLE\TRIMETHOPRIM
     Dosage: TAKE 2 TABLETS (160 MG TOTAL) BY MOUTH 3 (THREE) TIMES A WEEK.
  8. MEGESTROL ACETATE. [Concomitant]
     Active Substance: MEGESTROL ACETATE
  9. PROCHLORPERAZINE. [Concomitant]
     Active Substance: PROCHLORPERAZINE
     Indication: NAUSEA
     Dosage: 1 SUPPOSITORY (25 MG TOTAL) RECTALLY EVERY 12 (TWELVE) HOURS AS
  10. SENOKOT-S [Concomitant]
     Active Substance: DOCUSATE SODIUM\SENNOSIDES
     Dosage: TAKE 1 TABLET BY MOUTH 2 (TWO) TIMES DAY
  11. EXCEDRIN [Concomitant]
     Active Substance: ACETAMINOPHEN\ASPIRIN\CAFFEINE
     Indication: ANALGESIC THERAPY
  12. NYSTATIN. [Concomitant]
     Active Substance: NYSTATIN
  13. NAPROSYN [Concomitant]
     Active Substance: NAPROXEN
  14. TYLENOL [Concomitant]
     Active Substance: ACETAMINOPHEN
     Indication: ANALGESIC THERAPY
  15. TOPIRAMATE. [Concomitant]
     Active Substance: TOPIRAMATE
  16. GABAPENTIN. [Concomitant]
     Active Substance: GABAPENTIN
     Indication: ANTICONVULSANT DRUG LEVEL
  17. ONDANSETRON [Concomitant]
     Active Substance: ONDANSETRON
     Indication: NAUSEA
     Dosage: TAKE 1 TABLET (8 MG TOTAL) BY MOUTH EVERY 8 (EIGHT) HOURS AS NEEDED
  18. COMPAZINE [Concomitant]
     Active Substance: PROCHLORPERAZINE MALEATE
     Indication: NAUSEA
     Dosage: 25 MG RECTALLY EVERY 12 HOURS
  19. DECADRON [Concomitant]
     Active Substance: DEXAMETHASONE
     Indication: NEOPLASM MALIGNANT
  20. OXYCONTIN [Concomitant]
     Active Substance: OXYCODONE HYDROCHLORIDE
     Dosage: 1 TABLET (30 MG TOTAL) BY MOUTH EVERY 12 (TWELVE) HOURS.
  21. LORAZEPAM. [Concomitant]
     Active Substance: LORAZEPAM
     Indication: ANXIETY
     Dosage: ATIVAN-(0.5 MG)1 TO 2 TABLETS AT BEDTIME AS NEEDED
  22. DEXAMETHASONE. [Concomitant]
     Active Substance: DEXAMETHASONE
     Indication: OEDEMA
  23. HYDROMORPHONE [Concomitant]
     Active Substance: HYDROMORPHONE
     Indication: PAIN
     Dosage: 1 TABLET (4 MG TOTAL) BY MOUTH EVERY 4 (FOUR) HOURS AS NEEDED
  24. OXYCODONE [Concomitant]
     Active Substance: OXYCODONE
     Indication: ANALGESIC THERAPY
  25. ASPIRIN. [Concomitant]
     Active Substance: ASPIRIN
     Indication: ANALGESIC THERAPY
  26. MAGNESIUM OXIDE. [Concomitant]
     Active Substance: MAGNESIUM OXIDE
  27. LORAZEPAM. [Concomitant]
     Active Substance: LORAZEPAM
     Indication: NAUSEA
     Dosage: ATIVAN-(0.5 MG)1 TO 2 TABLETS AT BEDTIME AS NEEDED
  28. TEMODAR [Concomitant]
     Active Substance: TEMOZOLOMIDE
     Indication: CHEMOTHERAPY
  29. MORPHINE [Concomitant]
     Active Substance: MORPHINE
     Indication: ANALGESIC THERAPY
  30. PRILOSEC [Suspect]
     Active Substance: OMEPRAZOLE MAGNESIUM
     Indication: GASTROOESOPHAGEAL REFLUX DISEASE
     Dosage: GENERIC
     Route: 065
  31. PRILOSEC [Suspect]
     Active Substance: OMEPRAZOLE MAGNESIUM
     Indication: GASTROOESOPHAGEAL REFLUX DISEASE
     Route: 048
     Dates: start: 20141024
  32. PRILOSEC OTC [Suspect]
     Active Substance: OMEPRAZOLE MAGNESIUM
     Indication: GASTROOESOPHAGEAL REFLUX DISEASE
     Route: 048
     Dates: start: 2014
  33. DRONABINOL. [Concomitant]
     Active Substance: DRONABINOL
  34. ELVIAL [Concomitant]
     Indication: BRAIN CANCER METASTATIC
  35. DILAUDID [Concomitant]
     Active Substance: HYDROMORPHONE HYDROCHLORIDE
     Indication: ANALGESIC THERAPY
  36. AMOXICILLIN. [Concomitant]
     Active Substance: AMOXICILLIN
  37. LEVETIRACETAM. [Concomitant]
     Active Substance: LEVETIRACETAM
     Dosage: TAKE 1 TABLET (500 MG TOTAL) BY MOUTH EVERY 12 (TWE LVE) HOURS.
  38. FLUCONAZOLE. [Concomitant]
     Active Substance: FLUCONAZOLE
  39. ZANTAC [Concomitant]
     Active Substance: RANITIDINE HYDROCHLORIDE
     Dosage: ZANTAC 75 (TOC)

REACTIONS (2)
  - Acute kidney injury [Unknown]
  - Chronic kidney disease [Not Recovered/Not Resolved]

NARRATIVE: CASE EVENT DATE: 20141218
